FAERS Safety Report 4335663-2 (Version None)
Quarter: 2004Q2

REPORT INFORMATION
  Report Type: 
  Country: None (occurrence: None)
  Receive Date: 20040406
  Receipt Date: 20040323
  Transmission Date: 20050107
  Serious: Yes (Death)
  Sender: FDA-Public Use
  Company Number: 163-20785-04030573

PATIENT
  Age: 73 Year

DRUGS (1)
  1. THALIDOMDE (THALIDOMIDE) (50 MILLIGRAM, CAPSULES) [Suspect]
     Indication: ACUTE MYELOID LEUKAEMIA
     Dosage: 200-600 MG, QD, ORAL
     Route: 048

REACTIONS (2)
  - PULMONARY HAEMORRHAGE [None]
  - THROMBOCYTOPENIA [None]
